FAERS Safety Report 4598149-6 (Version None)
Quarter: 2005Q1

REPORT INFORMATION
  Report Type: 
  Country: None (occurrence: None)
  Receive Date: 20050302
  Receipt Date: 20050218
  Transmission Date: 20050727
  Serious: Yes (Hospitalization)
  Sender: FDA-Public Use
  Company Number: 2005SE00152

PATIENT
  Age: 47 Year
  Sex: Female
  Weight: 125 kg

DRUGS (5)
  1. SEROQUEL [Suspect]
     Indication: MANIA
     Dosage: 600 MG + 60 MG AS NEEDED
     Dates: start: 20041025
  2. LITHIUM [Concomitant]
  3. LITAREX [Concomitant]
  4. RIVOTRIL [Concomitant]
  5. ZELDOX [Concomitant]

REACTIONS (1)
  - PLEUROTHOTONUS [None]
